FAERS Safety Report 8277035-4 (Version None)
Quarter: 2012Q2

REPORT INFORMATION
  Report Type: 
  Country: None (occurrence: None)
  Receive Date: 20120412
  Receipt Date: 20120328
  Transmission Date: 20120825
  Serious: Yes (Other)
  Sender: FDA-Public Use
  Company Number: JP-ROCHE-1058357

PATIENT
  Age: 28 Year
  Sex: Female

DRUGS (4)
  1. GANCICLOVIR [Suspect]
     Indication: PRODUCT USED FOR UNKNOWN INDICATION
     Route: 041
  2. METHYLPREDNISOLONE ACETATE [Suspect]
     Indication: JUVENILE ARTHRITIS
     Route: 042
     Dates: start: 20100901
  3. DEXAMETHASONE [Suspect]
     Indication: JUVENILE ARTHRITIS
     Dates: start: 20100901
  4. CYCLOSPORINE [Suspect]
     Indication: JUVENILE ARTHRITIS

REACTIONS (2)
  - MATERNAL EXPOSURE DURING PREGNANCY [None]
  - FOETAL GROWTH RESTRICTION [None]
